FAERS Safety Report 12676893 (Version 1)
Quarter: 2016Q3

REPORT INFORMATION
  Report Type: Spontaneous
  Country: US (occurrence: US)
  Receive Date: 20160823
  Receipt Date: 20160823
  Transmission Date: 20161109
  Serious: No
  Sender: FDA-Public Use
  Company Number: US-TEVA-635750USA

PATIENT
  Age: 64 Year
  Sex: Female

DRUGS (1)
  1. MEDROXYPROGESTERONE [Suspect]
     Active Substance: MEDROXYPROGESTERONE
     Route: 065

REACTIONS (2)
  - Drug hypersensitivity [Unknown]
  - Adverse event [Unknown]

NARRATIVE: CASE EVENT DATE: 20120418
